FAERS Safety Report 9116007 (Version 1)
Quarter: 2013Q1

REPORT INFORMATION
  Report Type: Report from Study
  Country: DE (occurrence: DE)
  Receive Date: 20130225
  Receipt Date: 20130225
  Transmission Date: 20140127
  Serious: Yes (Hospitalization)
  Sender: FDA-Public Use
  Company Number: DE-BRISTOL-MYERS SQUIBB COMPANY-15536055

PATIENT
  Age: 61 Year
  Sex: Male

DRUGS (7)
  1. IPILIMUMAB [Suspect]
     Indication: PROSTATE CANCER
  2. PANTOZOL [Concomitant]
  3. IBUPROFEN [Concomitant]
  4. CO-DIOVAN [Concomitant]
  5. BISOPROLOL [Concomitant]
  6. TARGIN [Concomitant]
  7. THYROID [Concomitant]

REACTIONS (4)
  - Blood creatinine increased [Recovered/Resolved with Sequelae]
  - Haemoglobin decreased [Recovered/Resolved with Sequelae]
  - Fatigue [Recovered/Resolved]
  - C-reactive protein increased [Recovered/Resolved with Sequelae]
